FAERS Safety Report 23985816 (Version 1)
Quarter: 2024Q2

REPORT INFORMATION
  Report Type: Spontaneous
  Country: RU (occurrence: RU)
  Receive Date: 20240618
  Receipt Date: 20240618
  Transmission Date: 20240716
  Serious: Yes (Death, Hospitalization)
  Sender: FDA-Public Use
  Company Number: RU-PFIZER INC-PV202400079334

PATIENT
  Age: 67 Year
  Sex: Male

DRUGS (1)
  1. VYNDAMAX [Suspect]
     Active Substance: TAFAMIDIS
     Indication: Cardiomyopathy
     Dosage: 61 MG, 1X/DAY
     Route: 048
     Dates: start: 2023, end: 202405

REACTIONS (1)
  - Conduction disorder [Fatal]

NARRATIVE: CASE EVENT DATE: 20240501
